FAERS Safety Report 20869495 (Version 1)
Quarter: 2022Q2

REPORT INFORMATION
  Report Type: Report from Study
  Country: US (occurrence: US)
  Receive Date: 20220524
  Receipt Date: 20220524
  Transmission Date: 20220721
  Serious: Yes (Other)
  Sender: FDA-Public Use
  Company Number: US-BRISTOL-MYERS SQUIBB COMPANY-2022-041983

PATIENT
  Age: 77 Year
  Sex: Female
  Weight: 102.51 kg

DRUGS (1)
  1. REVLIMID [Suspect]
     Active Substance: LENALIDOMIDE
     Indication: Plasma cell myeloma
     Route: 048
     Dates: start: 20220218

REACTIONS (6)
  - Constipation [Unknown]
  - Nausea [Unknown]
  - Pruritus [Unknown]
  - Muscle spasms [Unknown]
  - Sleep disorder [Unknown]
  - Muscular weakness [Unknown]

NARRATIVE: CASE EVENT DATE: 20220201
